FAERS Safety Report 16064117 (Version 5)
Quarter: 2019Q3

REPORT INFORMATION
  Report Type: Spontaneous
  Country: PT (occurrence: PT)
  Receive Date: 20190312
  Receipt Date: 20190821
  Transmission Date: 20191004
  Serious: Yes (Life-Threatening, Hospitalization, Other)
  Sender: FDA-Public Use
  Company Number: PT-MYLANLABS-2019M1022486

PATIENT
  Age: 41 Year
  Sex: Male

DRUGS (5)
  1. CEFUROXIME. [Suspect]
     Active Substance: CEFUROXIME
     Indication: PNEUMONIA
     Dosage: UNK
     Route: 048
  2. AZITHROMYCIN ANHYDROUS. [Suspect]
     Active Substance: AZITHROMYCIN ANHYDROUS
     Indication: ANTIBIOTIC THERAPY
     Dosage: UNK
     Route: 048
  3. AMOXICILLIN/CLAVULANIC ACID [Suspect]
     Active Substance: AMOXICILLIN\CLAVULANIC ACID
     Indication: ANTIBIOTIC THERAPY
     Dosage: UNK
     Route: 048
  4. AMOXICILLIN/CLAVULANIC ACID [Suspect]
     Active Substance: AMOXICILLIN\CLAVULANIC ACID
     Indication: PNEUMONIA
  5. AZITHROMYCIN ANHYDROUS. [Suspect]
     Active Substance: AZITHROMYCIN ANHYDROUS
     Indication: PNEUMONIA

REACTIONS (11)
  - Rash pustular [Unknown]
  - Leukocytosis [Unknown]
  - Rash [Unknown]
  - Oral disorder [Unknown]
  - Stevens-Johnson syndrome [Unknown]
  - Conjunctival hyperaemia [Unknown]
  - Pyrexia [Unknown]
  - Oropharyngeal plaque [Unknown]
  - Off label use [Unknown]
  - Oral mucosal exfoliation [Unknown]
  - Odynophagia [Unknown]
